FAERS Safety Report 8891558 (Version 1)
Quarter: 2012Q4

REPORT INFORMATION
  Report Type: 
  Country: US (occurrence: US)
  Receive Date: 20121107
  Receipt Date: 20121107
  Transmission Date: 20130627
  Serious: No
  Sender: FDA-Public Use
  Company Number: US-ASTRAZENECA-2012SE76892

PATIENT
  Age: 57 Year
  Sex: Female
  Weight: 151 kg

DRUGS (11)
  1. SYMBICORT PMDI [Suspect]
     Dosage: 160/4.5 MCG, TWO PUFFS, TWICE DAILY
     Route: 055
  2. VICODIN [Concomitant]
     Indication: PAIN
     Dosage: 10-660 1 TABLET SIX HOURS PRN
  3. CYMBALTA [Concomitant]
     Indication: DEPRESSION
     Route: 048
  4. CYMBALTA [Concomitant]
     Indication: NEUROPATHY PERIPHERAL
     Route: 048
  5. SLOW-K [Concomitant]
  6. SPIRIVA [Concomitant]
  7. METFORMIN [Concomitant]
  8. PROAIR [Concomitant]
     Dosage: 90 MCG/ ACT 2 PUFFS EVERY SIX HOURS
  9. OXYBUTYNIN CHLORIDE [Concomitant]
  10. FLUTICASONE PROPIONATE [Concomitant]
     Dosage: 50 MCG, 2 SPRAY ONCE DAILY
  11. LASIX [Concomitant]

REACTIONS (11)
  - Ligament sprain [Unknown]
  - Radiculopathy [Unknown]
  - Muscle strain [Unknown]
  - Diabetic neuropathy [Unknown]
  - Pain [Unknown]
  - Obesity [Unknown]
  - Chronic obstructive pulmonary disease [Unknown]
  - Pulmonary hypertension [Unknown]
  - Oedema peripheral [Recovered/Resolved]
  - Glucose tolerance impaired [Unknown]
  - Depression [Unknown]
